FAERS Safety Report 18008048 (Version 2)
Quarter: 2023Q2

REPORT INFORMATION
  Report Type: Spontaneous
  Country: IT (occurrence: IT)
  Receive Date: 20200710
  Receipt Date: 20230605
  Transmission Date: 20230721
  Serious: Yes (Life-Threatening, Hospitalization)
  Sender: FDA-Public Use
  Company Number: None

PATIENT
  Age: 26 Year
  Sex: Female

DRUGS (5)
  1. HEPARIN [Suspect]
     Active Substance: HEPARIN SODIUM
     Indication: Anticoagulant therapy
     Dosage: UNK
     Route: 065
  2. SEASONIQUE [Suspect]
     Active Substance: ETHINYL ESTRADIOL\LEVONORGESTREL
     Indication: Dysmenorrhoea
     Dosage: UNK
     Route: 065
     Dates: start: 2017, end: 201910
  3. SEASONIQUE [Suspect]
     Active Substance: ETHINYL ESTRADIOL\LEVONORGESTREL
     Indication: Contraception
  4. DABIGATRAN [Concomitant]
     Active Substance: DABIGATRAN
     Indication: Anticoagulant therapy
     Dosage: 150 MILLIGRAM, BID, EVERY 12 HOURS FOR THREE MONTH
     Route: 065
  5. RIVAROXABAN [Concomitant]
     Active Substance: RIVAROXABAN
     Indication: Anticoagulant therapy
     Dosage: UNK
     Route: 065

REACTIONS (7)
  - Pulmonary embolism [Recovered/Resolved]
  - Malaise [Unknown]
  - Tremor [Unknown]
  - Palpitations [Unknown]
  - Presyncope [Recovered/Resolved]
  - Drug hypersensitivity [Recovered/Resolved]
  - Urticaria [Recovered/Resolved]

NARRATIVE: CASE EVENT DATE: 20191002
